FAERS Safety Report 11646729 (Version 1)
Quarter: 2015Q4

REPORT INFORMATION
  Report Type: Spontaneous
  Country: US (occurrence: US)
  Receive Date: 20151020
  Receipt Date: 20151020
  Transmission Date: 20160304
  Serious: No
  Sender: FDA-Public Use
  Company Number: US-ROCHE-ITM201504IM013625

PATIENT
  Age: 80 Year
  Sex: Female
  Weight: 51.76 kg

DRUGS (2)
  1. PIRFENIDONE [Suspect]
     Active Substance: PIRFENIDONE
     Indication: IDIOPATHIC PULMONARY FIBROSIS
     Dosage: 3 CAPSULES THRICE A DAY
     Route: 048
     Dates: start: 20150224
  2. PIRFENIDONE [Suspect]
     Active Substance: PIRFENIDONE
     Dosage: 2 CAPSULES THRICE A DAY
     Route: 048
     Dates: start: 20150224

REACTIONS (12)
  - Cough [Unknown]
  - Night sweats [Unknown]
  - Decreased appetite [Recovering/Resolving]
  - Hyponatraemia [Unknown]
  - Nausea [Recovering/Resolving]
  - Gastric disorder [Recovering/Resolving]
  - Scarlet fever [Unknown]
  - Pertussis [Unknown]
  - Chapped lips [Unknown]
  - Weight decreased [Not Recovered/Not Resolved]
  - Balance disorder [Unknown]
  - Lip dry [Unknown]

NARRATIVE: CASE EVENT DATE: 201505
